FAERS Safety Report 11735565 (Version 1)
Quarter: 2015Q4

REPORT INFORMATION
  Report Type: Spontaneous
  Country: US (occurrence: US)
  Receive Date: 20151113
  Receipt Date: 20151113
  Transmission Date: 20160304
  Serious: No
  Sender: FDA-Public Use
  Company Number: US-JNJFOC-20151014943

PATIENT
  Age: 52 Year
  Sex: Male

DRUGS (3)
  1. ALPRAZOLAM. [Concomitant]
     Active Substance: ALPRAZOLAM
     Indication: SLEEP DISORDER THERAPY
     Route: 048
  2. TRAZODONE [Concomitant]
     Active Substance: TRAZODONE HYDROCHLORIDE
     Indication: INSOMNIA
     Route: 048
  3. RISPERIDONE. [Suspect]
     Active Substance: RISPERIDONE
     Indication: CRANIOCEREBRAL INJURY
     Dosage: AT NIGHT
     Route: 048

REACTIONS (7)
  - Agitation [Unknown]
  - Off label use [Unknown]
  - Restlessness [Unknown]
  - Disturbance in attention [Unknown]
  - Sexual dysfunction [Unknown]
  - Product use issue [Unknown]
  - Hallucination, auditory [Unknown]
